FAERS Safety Report 14378422 (Version 1)
Quarter: 2018Q1

REPORT INFORMATION
  Report Type: Spontaneous
  Country: IN (occurrence: IN)
  Receive Date: 20180111
  Receipt Date: 20180111
  Transmission Date: 20180509
  Serious: Yes (Other)
  Sender: FDA-Public Use
  Company Number: IN-STRIDES ARCOLAB LIMITED-2018SP000129

PATIENT

DRUGS (1)
  1. METHOXSALEN. [Suspect]
     Active Substance: METHOXSALEN
     Indication: VITILIGO
     Dosage: 10-30 MG/DAY
     Route: 048

REACTIONS (4)
  - Ocular toxicity [Unknown]
  - Visual impairment [Unknown]
  - Metamorphopsia [Unknown]
  - Off label use [Unknown]
